FAERS Safety Report 12895772 (Version 1)
Quarter: 2016Q4

REPORT INFORMATION
  Report Type: Report from Study
  Country: US (occurrence: US)
  Receive Date: 20161031
  Receipt Date: 20161031
  Transmission Date: 20170207
  Serious: No
  Sender: FDA-Public Use
  Company Number: US-AMGEN-USASP2016140303

PATIENT
  Age: 60 Year
  Sex: Male

DRUGS (3)
  1. L ARGININE [Suspect]
     Active Substance: ARGININE
     Indication: SUPPLEMENTATION THERAPY
     Dosage: UNK
     Route: 065
  2. CREATINE [Concomitant]
     Active Substance: CREATINE
     Indication: SUPPLEMENTATION THERAPY
     Dosage: UNK
  3. ENBREL [Suspect]
     Active Substance: ETANERCEPT
     Indication: RHEUMATOID ARTHRITIS
     Dosage: UNK
     Route: 065

REACTIONS (1)
  - Chromaturia [Unknown]
